FAERS Safety Report 17246642 (Version 6)
Quarter: 2021Q2

REPORT INFORMATION
  Report Type: Spontaneous
  Country: US (occurrence: US)
  Receive Date: 20200108
  Receipt Date: 20210413
  Transmission Date: 20210716
  Serious: No
  Sender: FDA-Public Use
  Company Number: US-PFIZER INC-2020001834

PATIENT
  Age: 66 Year
  Sex: Female
  Weight: 99.79 kg

DRUGS (1)
  1. XELJANZ [Suspect]
     Active Substance: TOFACITINIB CITRATE
     Indication: RHEUMATOID ARTHRITIS
     Dosage: 5 MG, 2X/DAY
     Route: 048
     Dates: start: 201503

REACTIONS (2)
  - Product administration error [Unknown]
  - Impaired work ability [Unknown]

NARRATIVE: CASE EVENT DATE: 201806
